FAERS Safety Report 17864086 (Version 1)
Quarter: 2020Q2

REPORT INFORMATION
  Report Type: Spontaneous
  Country: US (occurrence: US)
  Receive Date: 20200605
  Receipt Date: 20200605
  Transmission Date: 20200714
  Serious: No
  Sender: FDA-Public Use
  Company Number: US-GW PHARMA-202006USGW01988

PATIENT

DRUGS (2)
  1. EPIDIOLEX [Suspect]
     Active Substance: CANNABIDIOL
     Indication: PRODUCT USED FOR UNKNOWN INDICATION
     Dosage: UNK (TITRATED TO TARGET DOSE OF 300 MILLIGRAM BID)
     Route: 048
     Dates: start: 201912
  2. EPIDIOLEX [Suspect]
     Active Substance: CANNABIDIOL
     Dosage: 290 MILLIGRAM, BID (TITRATED TO TARGET DOSE 300 MILLIGRAM BID, ON FEB 2020 DOCTOR TOLD HER TO TITRAT
     Route: 048

REACTIONS (1)
  - Fatigue [Unknown]
